FAERS Safety Report 10572688 (Version 2)
Quarter: 2014Q4

REPORT INFORMATION
  Report Type: Spontaneous
  Country: IT (occurrence: IT)
  Receive Date: 20141110
  Receipt Date: 20141211
  Transmission Date: 20150529
  Serious: Yes (Hospitalization)
  Sender: FDA-Public Use
  Company Number: IT-009507513-1411ITA000006

PATIENT
  Age: 49 Year
  Sex: Female

DRUGS (11)
  1. TIKLID [Concomitant]
     Active Substance: TICLOPIDINE HYDROCHLORIDE
     Dosage: UNK
     Route: 048
     Dates: start: 20141026
  2. DEXAMETHASONE. [Concomitant]
     Active Substance: DEXAMETHASONE
     Indication: PROPHYLAXIS
     Dosage: UNK
     Route: 048
  3. ULTIVA [Suspect]
     Active Substance: REMIFENTANIL HYDROCHLORIDE
     Indication: ANAESTHESIA
     Dosage: 4 MG, TOTAL
     Route: 042
     Dates: start: 20141006, end: 20141006
  4. SEVOFLURANE. [Suspect]
     Active Substance: SEVOFLURANE
     Indication: ANAESTHESIA
     Dosage: 1 POSOLOGICAL UNIT, TOTAL (FORMULATION: NEBULIZED SOLUTION)
     Route: 055
     Dates: start: 20141006, end: 20141006
  5. ASCRIPTIN [Concomitant]
     Active Substance: ASPIRIN
     Dosage: UNK
     Route: 048
     Dates: start: 20140926
  6. PROPOFOL B BRAUN [Suspect]
     Active Substance: PROPOFOL
     Indication: ANAESTHESIA
     Dosage: 100 MG, TOTAL
     Route: 042
     Dates: start: 20141006, end: 20141006
  7. EPSOCLAR [Concomitant]
     Active Substance: HEPARIN SODIUM
     Dosage: UNK, STRENGTH: 8000 UNIT
     Route: 042
  8. VISIPAQUE [Suspect]
     Active Substance: IODIXANOL
     Indication: ANGIOGRAM CEREBRAL
     Dosage: 200 ML, TOTAL (STRENGTH = 320 MG I/ML)
     Route: 013
     Dates: start: 20141006, end: 20141006
  9. ESMERON [Suspect]
     Active Substance: ROCURONIUM BROMIDE
     Indication: ANAESTHESIA
     Dosage: 50 MG, TOTAL
     Route: 042
     Dates: start: 20141006, end: 20141006
  10. LIDOCAINE HYDROCHLORIDE. [Suspect]
     Active Substance: LIDOCAINE HYDROCHLORIDE
     Indication: ANAESTHESIA
     Dosage: 60 MG, TOTAL (STRENGTH = 20 MG/ML)
     Route: 042
     Dates: start: 20141006, end: 20141006
  11. ZANTAC [Concomitant]
     Active Substance: RANITIDINE HYDROCHLORIDE
     Dosage: UNK
     Route: 048
     Dates: start: 20140926, end: 20141006

REACTIONS (3)
  - Hemiparesis [Recovered/Resolved]
  - Aphasia [Recovered/Resolved]
  - Neurotoxicity [Recovered/Resolved]

NARRATIVE: CASE EVENT DATE: 20141006
